FAERS Safety Report 6195709-6 (Version None)
Quarter: 2009Q2

REPORT INFORMATION
  Report Type: 
  Country: None (occurrence: None)
  Receive Date: 20090520
  Receipt Date: 20071017
  Transmission Date: 20091009
  Serious: Yes (Other)
  Sender: FDA-Public Use
  Company Number: US-ASTRAZENECA-2007UW16239

PATIENT
  Age: 16056 Day
  Sex: Male
  Weight: 158.8 kg

DRUGS (38)
  1. SEROQUEL [Suspect]
     Indication: SCHIZOPHRENIA
     Route: 048
     Dates: start: 20040101, end: 20050101
  2. SEROQUEL [Suspect]
     Indication: DEPRESSION
     Route: 048
     Dates: start: 20040101, end: 20050101
  3. SEROQUEL [Suspect]
     Dosage: 300-1200 MG
     Route: 048
     Dates: start: 20040312
  4. SEROQUEL [Suspect]
     Dosage: 300-1200 MG
     Route: 048
     Dates: start: 20040312
  5. SINGULAIR [Concomitant]
     Route: 048
  6. ASPIRIN [Concomitant]
     Route: 065
  7. VERAPAMIL EXTENDED-RELEASE [Concomitant]
     Dosage: 180-240 MG
     Route: 065
  8. LISINOPRIL [Concomitant]
     Route: 048
  9. BENICAR/HYDROCHLORTHIAZIDE [Concomitant]
     Dosage: 40/25 MG
     Route: 065
  10. AMILORIDE HYDROCHLORIDE [Concomitant]
     Dosage: 5-10 MG
     Route: 065
  11. MINOXIDIL [Concomitant]
     Route: 065
  12. SPIRONOLACTONE [Concomitant]
     Dosage: 25-50 MG
     Route: 065
  13. LEXAPRO [Concomitant]
     Route: 048
  14. LAMICTAL [Concomitant]
     Dosage: 25-200 MG
     Route: 048
  15. WELLBUTRIN XL [Concomitant]
     Dosage: XL 300-450 MG, SR 300 MG
     Route: 048
  16. GEODON [Concomitant]
     Dosage: 80-320 MG
     Route: 048
  17. LORAZEPAM [Concomitant]
     Route: 048
  18. TRAZODONE HCL [Concomitant]
     Dosage: 50 MG ONE TO TWO P.R.N
     Route: 048
  19. RISPERIDONE [Concomitant]
     Dosage: 1-3 MG
     Route: 048
  20. DOCUSATE SODIUM [Concomitant]
     Route: 065
  21. FLOVENT [Concomitant]
     Route: 065
  22. AVANDIA [Concomitant]
     Route: 065
  23. NORVASC [Concomitant]
     Route: 065
  24. PREDNISONE [Concomitant]
     Route: 065
  25. ZOLPIDEM [Concomitant]
     Route: 065
  26. CLINDAMYCIN HCL [Concomitant]
     Route: 065
  27. CEFUROXIME [Concomitant]
     Route: 065
  28. ALBUTEROL [Concomitant]
     Route: 065
  29. DEPAKOTE [Concomitant]
     Dosage: 500-1000 MG
     Route: 065
  30. FURSEMIDE [Concomitant]
     Route: 065
  31. ABILIFY [Concomitant]
     Route: 065
  32. COMBIVENT [Concomitant]
     Route: 065
  33. PRILOSEC [Concomitant]
     Route: 065
  34. PENICILLIN VK [Concomitant]
     Route: 065
  35. ENALAPRIL [Concomitant]
     Route: 065
  36. NYSTATIN [Concomitant]
     Route: 065
  37. THEOPHYLLINE [Concomitant]
     Route: 065
  38. ADVAIR HFA [Concomitant]
     Route: 065

REACTIONS (16)
  - ANGER [None]
  - ANXIETY [None]
  - CONSTIPATION [None]
  - DIABETES MELLITUS [None]
  - DRUG ABUSE [None]
  - DYSTHYMIC DISORDER [None]
  - FATIGUE [None]
  - FRUSTRATION [None]
  - IRRITABILITY [None]
  - MAJOR DEPRESSION [None]
  - PANIC ATTACK [None]
  - PARANOIA [None]
  - PNEUMONIA [None]
  - PSYCHOTIC DISORDER [None]
  - SCHIZOPHRENIA, PARANOID TYPE [None]
  - STRESS [None]
